FAERS Safety Report 21720912 (Version 1)
Quarter: 2022Q4

REPORT INFORMATION
  Report Type: Spontaneous
  Country: US (occurrence: None)
  Receive Date: 20221212
  Receipt Date: 20221212
  Transmission Date: 20230113
  Serious: Yes (Hospitalization)
  Sender: FDA-Public Use
  Company Number: None

PATIENT
  Age: 54 Year
  Sex: Male

DRUGS (3)
  1. VANCOMYCIN HYDROCHLORIDE [Suspect]
     Active Substance: VANCOMYCIN HYDROCHLORIDE
     Indication: Osteomyelitis
     Dosage: 1750 MG BID IV
     Route: 042
     Dates: start: 20160531, end: 20160620
  2. AMPICILLIN SODIUM\SULBACTAM SODIUM [Suspect]
     Active Substance: AMPICILLIN SODIUM\SULBACTAM SODIUM
     Indication: Osteomyelitis
     Dosage: 3 GM QID IV
     Route: 042
     Dates: start: 20160528, end: 20160628
  3. ALLOPURINOL [Suspect]
     Active Substance: ALLOPURINOL

REACTIONS (3)
  - Neutropenia [None]
  - Leukopenia [None]
  - Pyrexia [None]

NARRATIVE: CASE EVENT DATE: 20160628
